FAERS Safety Report 6908808-5 (Version None)
Quarter: 2010Q3

REPORT INFORMATION
  Report Type: 
  Country: None (occurrence: None)
  Receive Date: 20100805
  Receipt Date: 20100730
  Transmission Date: 20110219
  Serious: Yes (Other)
  Sender: FDA-Public Use
  Company Number: A0873917A

PATIENT
  Age: 51 Year
  Sex: Female

DRUGS (2)
  1. WELLBUTRIN SR [Suspect]
     Route: 048
     Dates: start: 20100615
  2. NO CONCURRENT MEDICATIONS [Concomitant]

REACTIONS (3)
  - AGEUSIA [None]
  - ANOSMIA [None]
  - NAUSEA [None]
